FAERS Safety Report 12880494 (Version 2)
Quarter: 2018Q4

REPORT INFORMATION
  Report Type: Spontaneous
  Country: US (occurrence: US)
  Receive Date: 20161025
  Receipt Date: 20181115
  Transmission Date: 20190204
  Serious: No
  Sender: FDA-Public Use
  Company Number: US-BAUSCH-BL-2016-014020

PATIENT
  Age: 48 Year
  Sex: Female
  Weight: 83.4 kg

DRUGS (1)
  1. ATIVAN [Suspect]
     Active Substance: LORAZEPAM
     Indication: NAUSEA
     Dosage: 1 DOSE
     Route: 065

REACTIONS (7)
  - Off label use [Unknown]
  - Hallucination [Unknown]
  - Asthenia [Unknown]
  - Balance disorder [Unknown]
  - Photopsia [Unknown]
  - Sedation [Unknown]
  - Dizziness [Unknown]
